FAERS Safety Report 8061606-4 (Version None)
Quarter: 2012Q1

REPORT INFORMATION
  Report Type: 
  Country: None (occurrence: None)
  Receive Date: 20120122
  Receipt Date: 20120109
  Transmission Date: 20120608
  Serious: Yes (Death, Hospitalization)
  Sender: FDA-Public Use
  Company Number: KR-ROCHE-1027567

PATIENT
  Sex: Male
  Weight: 43 kg

DRUGS (17)
  1. MEGESTROL ACETATE [Concomitant]
     Dates: start: 20111116
  2. RAMOSETRON [Concomitant]
     Dates: start: 20111117, end: 20111118
  3. METOCLOPRAMIDE [Concomitant]
     Dates: start: 20120104, end: 20120104
  4. HERCEPTIN [Suspect]
     Indication: GASTRIC CANCER
     Dosage: DATE OF THE LAST DOSE PRIOR TO SAE: 19/DEC/2011
     Route: 042
     Dates: start: 20111219
  5. RAMOSETRON [Concomitant]
     Dates: start: 20111116, end: 20111116
  6. DEXAMETHASONE [Concomitant]
     Dates: start: 20111117, end: 20111119
  7. XELODA [Suspect]
     Indication: GASTRIC CANCER
     Dosage: DOSE: D1-D14, EVERY 3 WEEKS. DATE OF LAST DOSE PRIOR TO SAE(FATIGUE): 02/JAN/2012
     Route: 048
     Dates: start: 20111219
  8. PANTOPRAZOLE [Concomitant]
     Dates: start: 20111123
  9. FEROBA-YOU [Concomitant]
     Dates: start: 20111125
  10. OXALIPLATIN [Suspect]
     Indication: GASTRIC CANCER
     Dosage: DATE OF LAST DOSE PRIOR TO SAE( FATIGUE) 19/DEC/2011
     Route: 042
     Dates: start: 20111219
  11. ULTRACET [Concomitant]
     Dates: start: 20111116, end: 20111219
  12. FOLIC ACID [Concomitant]
     Dates: start: 20111125
  13. PANBURON [Concomitant]
     Dates: start: 20111125
  14. SODIUM CARBONATE [Concomitant]
     Dates: start: 20111125
  15. RANITIDINE [Concomitant]
     Dates: start: 20111117, end: 20111119
  16. METOCLOPRAMIDE [Concomitant]
     Dates: start: 20111219
  17. DEXAMETHASONE [Concomitant]
     Dates: start: 20111116, end: 20111116

REACTIONS (3)
  - DIARRHOEA [None]
  - DECREASED APPETITE [None]
  - FATIGUE [None]
